FAERS Safety Report 7529288-5 (Version None)
Quarter: 2011Q2

REPORT INFORMATION
  Report Type: 
  Country: None (occurrence: None)
  Receive Date: 20110607
  Receipt Date: 20050310
  Transmission Date: 20111010
  Serious: Yes (Hospitalization)
  Sender: FDA-Public Use
  Company Number: PHFR2005GB01182

PATIENT
  Sex: Male

DRUGS (3)
  1. PROZAC [Concomitant]
     Dosage: 20 MG/DAY
     Route: 048
  2. CLOZARIL [Suspect]
     Indication: SCHIZOPHRENIA
     Dosage: 400 MG/DAY
     Route: 048
     Dates: start: 19930301
  3. PROCYCLIDINE HYDROCHLORIDE 2MG TAB [Concomitant]
     Dosage: 20 MG/DAY
     Route: 048

REACTIONS (2)
  - EAR DISORDER [None]
  - DEAFNESS [None]
